FAERS Safety Report 9933776 (Version 2)
Quarter: 2014Q1

REPORT INFORMATION
  Report Type: Report from Study
  Country: US (occurrence: US)
  Receive Date: 20140228
  Receipt Date: 20140228
  Transmission Date: 20141002
  Serious: No
  Sender: FDA-Public Use
  Company Number: US-MYLANLABS-2013S1013685

PATIENT
  Age: 18 Year
  Sex: Female
  Weight: 69.85 kg

DRUGS (2)
  1. AMNESTEEM CAPSULES [Suspect]
     Indication: ACNE CYSTIC
     Dates: start: 20130416, end: 20130606
  2. AMNESTEEM CAPSULES [Suspect]
     Indication: ACNE CYSTIC
     Dates: start: 20130416, end: 20130606

REACTIONS (2)
  - Sunburn [Recovered/Resolved]
  - Rash [Recovered/Resolved]
